FAERS Safety Report 14963855 (Version 1)
Quarter: 2018Q2

REPORT INFORMATION
  Report Type: Spontaneous
  Country: US (occurrence: US)
  Receive Date: 20180601
  Receipt Date: 20180601
  Transmission Date: 20180711
  Serious: No
  Sender: FDA-Public Use
  Company Number: US-SA-2018SA145683

PATIENT
  Sex: Female

DRUGS (1)
  1. CLOMID [Suspect]
     Active Substance: CLOMIPHENE CITRATE
     Dosage: 100 MG

REACTIONS (5)
  - Feeling abnormal [Unknown]
  - Hypoaesthesia [Unknown]
  - Paraesthesia [Unknown]
  - Swelling [Unknown]
  - Skin burning sensation [Unknown]
